FAERS Safety Report 17831485 (Version 1)
Quarter: 2020Q2

REPORT INFORMATION
  Report Type: Spontaneous
  Country: NL (occurrence: GB)
  Receive Date: 20200527
  Receipt Date: 20200527
  Transmission Date: 20200714
  Serious: Yes (Death)
  Sender: FDA-Public Use
  Company Number: GB-FRESENIUS KABI-FK202005155

PATIENT
  Age: 53 Year
  Sex: Male

DRUGS (7)
  1. AMINOVEN 15% [Suspect]
     Active Substance: AMINO ACIDS, SOURCE UNSPECIFIED
     Indication: PARENTERAL NUTRITION
     Dosage: VOLUME: 428ML
     Route: 042
     Dates: end: 20200407
  2. ASCORBIC ACID. [Suspect]
     Active Substance: ASCORBIC ACID
     Indication: PARENTERAL NUTRITION
     Dosage: VOLUME: 2ML
     Route: 042
     Dates: end: 20200407
  3. GLUCOSE [Suspect]
     Active Substance: DEXTROSE
     Indication: PARENTERAL NUTRITION
     Dosage: VOLUME: 700ML
     Route: 042
     Dates: end: 20200407
  4. SOLUVIT N [Suspect]
     Active Substance: VITAMINS
     Indication: PARENTERAL NUTRITION
     Dosage: VOLUME: 10ML
     Route: 042
     Dates: end: 20200407
  5. VITALIPID ADULT [Suspect]
     Active Substance: ERGOCALCIFEROL\PHYTONADIONE\RETINOL\TOCOPHEROL
     Indication: PARENTERAL NUTRITION
     Dosage: VOLUME: 10ML
     Route: 042
     Dates: end: 20200407
  6. FERROUS GLUCONATE/COPPER GLUCONATE/ZINC GLUCONATE/MANGANESE GLUCONATE/SODIUM MOLYBDATE/POTASSIUM IOD [Suspect]
     Active Substance: ELECTROLYTES NOS\MINERALS
     Indication: PARENTERAL NUTRITION
     Dosage: VOLUME: 10ML
     Route: 042
     Dates: end: 20200407
  7. SMOFLIPID [Suspect]
     Active Substance: FISH OIL\MEDIUM-CHAIN TRIGLYCERIDES\OLIVE OIL\SOYBEAN OIL
     Indication: PARENTERAL NUTRITION
     Dosage: VOLUME: 400ML
     Route: 042
     Dates: end: 20200407

REACTIONS (1)
  - Death [Fatal]

NARRATIVE: CASE EVENT DATE: 20200407
